FAERS Safety Report 15429644 (Version 4)
Quarter: 2018Q4

REPORT INFORMATION
  Report Type: Spontaneous
  Country: US (occurrence: US)
  Receive Date: 20180926
  Receipt Date: 20181231
  Transmission Date: 20190204
  Serious: Yes (Death, Life-Threatening, Hospitalization, Other)
  Sender: FDA-Public Use
  Company Number: US-PFIZER INC-2018381234

PATIENT
  Age: 14 Year
  Sex: Male

DRUGS (6)
  1. ENTECAVIR. [Suspect]
     Active Substance: ENTECAVIR
     Indication: AUTOIMMUNE HEPATITIS
     Dosage: UNK
  2. TACROLIMUS. [Suspect]
     Active Substance: TACROLIMUS
     Dosage: UNK (LOWERED TO RUN A GOAL TROUGH OF 3-4 NG/ML)
  3. TACROLIMUS. [Suspect]
     Active Substance: TACROLIMUS
     Indication: IMMUNOSUPPRESSION
     Dosage: UNK
  4. AZATHIOPRINE. [Concomitant]
     Active Substance: AZATHIOPRINE
     Indication: AUTOIMMUNE HEPATITIS
     Dosage: UNK
  5. ENTECAVIR. [Suspect]
     Active Substance: ENTECAVIR
     Indication: HEPATITIS B
  6. AZATHIOPRINE. [Concomitant]
     Active Substance: AZATHIOPRINE
     Indication: HEPATITIS B

REACTIONS (17)
  - Portal vein thrombosis [Recovered/Resolved]
  - Portal fibrosis [Unknown]
  - Status epilepticus [Unknown]
  - Toxicity to various agents [Unknown]
  - Ventricular fibrillation [Recovered/Resolved]
  - Multiple organ dysfunction syndrome [Unknown]
  - Hypotension [Unknown]
  - Hepatic failure [Unknown]
  - Sinus tachycardia [Unknown]
  - Portal vein occlusion [Unknown]
  - Mycoplasma infection [Unknown]
  - Renal tubular injury [Unknown]
  - Haemophagocytic lymphohistiocytosis [Fatal]
  - Autoimmune haemolytic anaemia [Fatal]
  - Metabolic acidosis [Unknown]
  - Cholestasis [Unknown]
  - Metabolic encephalopathy [Unknown]
